FAERS Safety Report 5401987-0 (Version None)
Quarter: 2007Q3

REPORT INFORMATION
  Report Type: 
  Country: None (occurrence: None)
  Receive Date: 20070727
  Receipt Date: 20070716
  Transmission Date: 20080115
  Serious: Yes (Death, Other)
  Sender: FDA-Public Use
  Company Number: GXKR2007DK06146

PATIENT
  Age: 36 Year
  Sex: Female
  Weight: 76 kg

DRUGS (2)
  1. THIAMAZOLE (NGX) (THIAMAZOLE), 5MG [Suspect]
     Indication: HYPERTHYROIDISM
     Dosage: 10 MG, ORAL
     Route: 048
     Dates: start: 20070329, end: 20070409
  2. VEPICOMBIN (PHENOXYMETHYLPENICILLIN, PHENOXYMETHYLPENICILLIN POTASSIUM [Concomitant]

REACTIONS (17)
  - ABDOMINAL DISTENSION [None]
  - ANAEMIA [None]
  - ATELECTASIS [None]
  - HAEMORRHAGE [None]
  - HEPATOCELLULAR DAMAGE [None]
  - HYPOTENSION [None]
  - LEUKOPENIA [None]
  - LYMPHADENOPATHY [None]
  - MULTI-ORGAN FAILURE [None]
  - OXYGEN SATURATION DECREASED [None]
  - PNEUMONIA [None]
  - RENAL FAILURE [None]
  - SEPSIS [None]
  - SHOCK [None]
  - TACHYCARDIA [None]
  - THROMBOCYTOPENIA [None]
  - TONSILLAR INFLAMMATION [None]
